FAERS Safety Report 8867583 (Version 1)
Quarter: 2012Q4

REPORT INFORMATION
  Report Type: 
  Country: US (occurrence: US)
  Receive Date: 20121025
  Receipt Date: 20121025
  Transmission Date: 20130627
  Serious: No
  Sender: FDA-Public Use
  Company Number: US-AMGEN-USASP2012017541

PATIENT
  Sex: Female

DRUGS (14)
  1. ENBREL [Suspect]
     Indication: PRODUCT USED FOR UNKNOWN INDICATION
     Dosage: 50 mg, qwk
     Route: 058
  2. AMBIEN [Concomitant]
     Dosage: 5 mg, UNK
  3. METFORMIN [Concomitant]
     Dosage: 500 mg, UNK
  4. POTASSIUM [Concomitant]
     Dosage: 75 mg, UNK
  5. XANAX [Concomitant]
     Dosage: 1 mg, UNK
  6. CYMBALTA [Concomitant]
     Dosage: 20 mg, UNK
  7. TRIAMTEREEN/HYDROCHLOOTTHIAZIDE [Concomitant]
  8. LEVOTHYROXIN [Concomitant]
     Dosage: 25 mug, UNK
  9. OMEPRAZOLE [Concomitant]
     Dosage: 10 mg, UNK
  10. VITAMIN D /00107901/ [Concomitant]
     Dosage: 400 IU, UNK
  11. AMARYL [Concomitant]
     Dosage: 2 mg, UNK
  12. PERCOCET                           /00446701/ [Concomitant]
  13. FISH OIL [Concomitant]
     Dosage: 1200 mg, UNK
  14. ASPIRIN [Concomitant]
     Dosage: 81 mg, UNK

REACTIONS (3)
  - Insomnia [Unknown]
  - Arthralgia [Unknown]
  - Injection site erythema [Recovered/Resolved]
